FAERS Safety Report 19081272 (Version 1)
Quarter: 2021Q2

REPORT INFORMATION
  Report Type: Spontaneous
  Country: US (occurrence: US)
  Receive Date: 20210401
  Receipt Date: 20210401
  Transmission Date: 20210717
  Serious: No
  Sender: FDA-Public Use
  Company Number: US-SUN PHARMACEUTICAL INDUSTRIES LTD-2021R1-276566

PATIENT
  Age: 79 Year
  Sex: Female

DRUGS (1)
  1. CAPECITABINE. [Suspect]
     Active Substance: CAPECITABINE
     Indication: COLON CANCER
     Dosage: UNK
     Route: 065
     Dates: start: 20201123

REACTIONS (3)
  - Skin weeping [Unknown]
  - Eye pruritus [Recovered/Resolved]
  - Dark circles under eyes [Unknown]

NARRATIVE: CASE EVENT DATE: 202012
